FAERS Safety Report 16180138 (Version 1)
Quarter: 2019Q2

REPORT INFORMATION
  Report Type: Spontaneous
  Country: AT (occurrence: AT)
  Receive Date: 20190410
  Receipt Date: 20190410
  Transmission Date: 20190711
  Serious: Yes (Other)
  Sender: FDA-Public Use
  Company Number: AT-TEVA-2019-AT-1033998

PATIENT
  Age: 38 Year
  Sex: Female

DRUGS (2)
  1. RATIODOLOR IBUPROFEN 400 MG FILMTABLETTEN [Suspect]
     Active Substance: IBUPROFEN
     Indication: HEADACHE
     Dates: start: 20181019, end: 20181019
  2. RATIODOLOR IBUPROFEN 400 MG FILMTABLETTEN [Suspect]
     Active Substance: IBUPROFEN
     Dates: start: 201902, end: 201902

REACTIONS (4)
  - Decreased appetite [Recovered/Resolved]
  - Gastritis [Recovered/Resolved]
  - Feeling abnormal [Recovered/Resolved]
  - Weight decreased [Recovered/Resolved]

NARRATIVE: CASE EVENT DATE: 20181019
